FAERS Safety Report 22182447 (Version 2)
Quarter: 2023Q2

REPORT INFORMATION
  Report Type: Spontaneous
  Country: US (occurrence: US)
  Receive Date: 20230406
  Receipt Date: 20230418
  Transmission Date: 20230721
  Serious: Yes (Death, Hospitalization, Other)
  Sender: FDA-Public Use
  Company Number: US-TEVA-2023-US-2872775

PATIENT
  Age: 47 Year
  Sex: Female

DRUGS (12)
  1. EPINEPHRINE [Suspect]
     Active Substance: EPINEPHRINE
     Indication: Acute myocardial infarction
     Route: 065
  2. EPINEPHRINE [Suspect]
     Active Substance: EPINEPHRINE
     Indication: Kounis syndrome
  3. PACLITAXEL [Suspect]
     Active Substance: PACLITAXEL
     Indication: Triple negative breast cancer
     Route: 065
  4. HYDROCORTISONE [Suspect]
     Active Substance: HYDROCORTISONE
     Indication: Acute myocardial infarction
     Route: 065
  5. HYDROCORTISONE [Suspect]
     Active Substance: HYDROCORTISONE
     Indication: Kounis syndrome
  6. NITROGLYCERIN [Suspect]
     Active Substance: NITROGLYCERIN
     Indication: Acute myocardial infarction
     Route: 022
  7. NITROGLYCERIN [Suspect]
     Active Substance: NITROGLYCERIN
     Indication: Kounis syndrome
  8. TECHNETIUM TC-99M ARCITUMOMAB [Suspect]
     Active Substance: TECHNETIUM TC-99M ARCITUMOMAB
     Indication: Scan myocardial perfusion
     Route: 065
  9. DIPHENHYDRAMINE [Suspect]
     Active Substance: DIPHENHYDRAMINE
     Indication: Acute myocardial infarction
     Route: 042
  10. DIPHENHYDRAMINE [Suspect]
     Active Substance: DIPHENHYDRAMINE
     Indication: Kounis syndrome
  11. ZOTAROLIMUS [Suspect]
     Active Substance: ZOTAROLIMUS
     Indication: Acute myocardial infarction
     Dosage: 2 DRUG-ELUTING STENTS
     Route: 065
  12. ZOTAROLIMUS [Suspect]
     Active Substance: ZOTAROLIMUS
     Indication: Kounis syndrome

REACTIONS (12)
  - Kounis syndrome [Fatal]
  - Acute myocardial infarction [Fatal]
  - Drug ineffective [Fatal]
  - Drug hypersensitivity [Recovered/Resolved]
  - Ventricular fibrillation [Fatal]
  - Pulseless electrical activity [Fatal]
  - Pruritus [Recovered/Resolved]
  - Urticaria [Recovered/Resolved]
  - Swelling face [Recovered/Resolved]
  - Flushing [Unknown]
  - Chest pain [Unknown]
  - Infusion related hypersensitivity reaction [Unknown]
